FAERS Safety Report 6762614-3 (Version None)
Quarter: 2010Q2

REPORT INFORMATION
  Report Type: 
  Country: None (occurrence: None)
  Receive Date: 20100609
  Receipt Date: 20100604
  Transmission Date: 20101027
  Serious: Yes (Hospitalization)
  Sender: FDA-Public Use
  Company Number: US-MERCK-1005USA03545

PATIENT
  Age: 60 Year
  Sex: Female

DRUGS (3)
  1. FOSAMAX PLUS D [Suspect]
     Indication: OSTEOPOROSIS
     Route: 048
     Dates: start: 20010101
  2. CALCIUM (UNSPECIFIED) [Concomitant]
     Route: 065
  3. VITAMIN D (UNSPECIFIED) [Concomitant]
     Route: 065

REACTIONS (2)
  - FALL [None]
  - FEMUR FRACTURE [None]
